FAERS Safety Report 14256718 (Version 2)
Quarter: 2018Q1

REPORT INFORMATION
  Report Type: Spontaneous
  Country: JP (occurrence: JP)
  Receive Date: 20171206
  Receipt Date: 20180227
  Transmission Date: 20180508
  Serious: Yes (Hospitalization, Other)
  Sender: FDA-Public Use
  Company Number: JP-GILEAD-2017-0300411

PATIENT
  Age: 73 Year
  Sex: Female
  Weight: 70.5 kg

DRUGS (6)
  1. METGLUCO [Concomitant]
     Active Substance: METFORMIN HYDROCHLORIDE
     Dosage: 500 MG, UNK
     Route: 048
  2. ZETIA [Concomitant]
     Active Substance: EZETIMIBE
     Route: 048
  3. TRAZENTA [Concomitant]
     Active Substance: LINAGLIPTIN
     Dosage: 5 MG, UNK
     Route: 048
  4. HARVONI [Suspect]
     Active Substance: LEDIPASVIR\SOFOSBUVIR
     Indication: HEPATITIS C
     Dosage: UNK
     Route: 065
     Dates: start: 20161102, end: 20170125
  5. PROPRANOLOL [Concomitant]
     Active Substance: PROPRANOLOL HYDROCHLORIDE
     Dosage: 200 MG, UNK
     Route: 048
  6. AZILVA [Concomitant]
     Active Substance: AZILSARTAN KAMEDOXOMIL
     Dosage: 20 MG, UNK
     Route: 048

REACTIONS (3)
  - Hepatitis C [Unknown]
  - Drug ineffective [Unknown]
  - Hepatocellular carcinoma [Recovered/Resolved]

NARRATIVE: CASE EVENT DATE: 201702
